FAERS Safety Report 7710188-2 (Version None)
Quarter: 2011Q3

REPORT INFORMATION
  Report Type: 
  Country: None (occurrence: None)
  Receive Date: 20110825
  Receipt Date: 20110706
  Transmission Date: 20111222
  Serious: Yes (Other)
  Sender: FDA-Public Use
  Company Number: US-MYLANLABS-2011S1014184

PATIENT
  Age: 64 Year
  Sex: Female

DRUGS (8)
  1. GABAPENTIN [Concomitant]
  2. OXYBUTYNIN [Concomitant]
  3. ALBUTEROL SULFATE AUTOHALER [Concomitant]
  4. VERAPAMIL [Concomitant]
  5. LEVOTHYROXINE SODIUM [Concomitant]
  6. SIMAVASTATIN [Concomitant]
  7. LOSARTAN [Concomitant]
  8. LEVETIRACETAM [Suspect]
     Indication: CONVULSION
     Route: 048

REACTIONS (1)
  - THROMBOCYTOPENIA [None]
